FAERS Safety Report 14074186 (Version 3)
Quarter: 2017Q4

REPORT INFORMATION
  Report Type: Spontaneous
  Country: US (occurrence: US)
  Receive Date: 20171010
  Receipt Date: 20171219
  Transmission Date: 20180321
  Serious: Yes (Hospitalization)
  Sender: FDA-Public Use
  Company Number: US-PFIZER INC-2017436786

PATIENT
  Age: 76 Year
  Sex: Female

DRUGS (3)
  1. LYRICA [Suspect]
     Active Substance: PREGABALIN
     Dosage: 50 MG, 2X/DAY
  2. LYRICA [Suspect]
     Active Substance: PREGABALIN
     Dosage: 25 MG, 3X/DAY
     Dates: start: 20170808
  3. LYRICA [Suspect]
     Active Substance: PREGABALIN
     Dosage: 75 MG, 2X/DAY
     Dates: start: 20171012

REACTIONS (5)
  - Drug ineffective [Unknown]
  - Gait disturbance [Unknown]
  - Pain [Not Recovered/Not Resolved]
  - Back disorder [Unknown]
  - Swelling [Unknown]

NARRATIVE: CASE EVENT DATE: 20170808
